FAERS Safety Report 18812145 (Version 1)
Quarter: 2021Q1

REPORT INFORMATION
  Report Type: Report from Study
  Country: IT (occurrence: IT)
  Receive Date: 20210130
  Receipt Date: 20210130
  Transmission Date: 20210419
  Serious: Yes (Hospitalization)
  Sender: FDA-Public Use
  Company Number: IT-ACCORD-215908

PATIENT
  Age: 47 Year
  Sex: Female

DRUGS (6)
  1. DEPAKIN [Suspect]
     Active Substance: VALPROATE SODIUM
     Dosage: STRENGTH: 1000 MG
     Route: 048
  2. QUETIAPINE. [Suspect]
     Active Substance: QUETIAPINE
     Route: 048
  3. MIRTAZAPINE. [Suspect]
     Active Substance: MIRTAZAPINE
     Route: 048
  4. PAROXETINE. [Suspect]
     Active Substance: PAROXETINE
     Route: 048
  5. LORAZEPAM. [Suspect]
     Active Substance: LORAZEPAM
     Route: 048
  6. FLUNOX [Suspect]
     Active Substance: FLURAZEPAM HYDROCHLORIDE
     Dosage: STRENGTH: 30 MG
     Route: 048

REACTIONS (6)
  - Disorientation [Recovering/Resolving]
  - Vertigo [Recovering/Resolving]
  - Visual impairment [Recovering/Resolving]
  - Nausea [Recovering/Resolving]
  - Intentional self-injury [Unknown]
  - Drug abuse [Unknown]

NARRATIVE: CASE EVENT DATE: 20201123
